FAERS Safety Report 10022472 (Version 2)
Quarter: 2014Q2

REPORT INFORMATION
  Report Type: Report from Study
  Country: DE (occurrence: DE)
  Receive Date: 20140319
  Receipt Date: 20140424
  Transmission Date: 20141212
  Serious: Yes (Other)
  Sender: FDA-Public Use
  Company Number: DE-CELGENEUS-062-50794-14030508

PATIENT
  Age: 78 Year
  Sex: Female
  Weight: 75 kg

DRUGS (14)
  1. VIDAZA [Suspect]
     Indication: ACUTE MYELOID LEUKAEMIA
     Route: 058
     Dates: start: 20130610, end: 20130618
  2. VIDAZA [Suspect]
     Route: 058
     Dates: start: 20130723, end: 20130828
  3. VIDAZA [Suspect]
     Route: 058
     Dates: start: 20130917
  4. CANDESARTAN [Concomitant]
     Indication: HYPERTENSION
     Route: 065
     Dates: start: 2011
  5. HYDROXYCHLOROTHIAZIDE [Concomitant]
     Indication: HYPERTENSION
     Route: 065
     Dates: start: 2011
  6. ACICLOVIR [Concomitant]
     Indication: INFECTION PROPHYLAXIS
     Route: 065
     Dates: start: 20130610
  7. AMPHOTERICIN B [Concomitant]
     Indication: INFECTION PROPHYLAXIS
     Dosage: PIPET
     Route: 065
     Dates: start: 20130610
  8. GRANISETRON [Concomitant]
     Indication: ANTIEMETIC SUPPORTIVE CARE
     Route: 041
     Dates: start: 20130610
  9. COTRIMOXAZOLE [Concomitant]
     Indication: INFECTION PROPHYLAXIS
     Dosage: 2 TABLET
     Route: 048
     Dates: start: 20130610
  10. ONDANSETRON [Concomitant]
     Indication: ANTIEMETIC SUPPORTIVE CARE
     Route: 048
     Dates: start: 20130610
  11. CEFACLOR [Concomitant]
     Indication: PNEUMONIA
     Dosage: 1500 MILLIGRAM
     Route: 048
     Dates: start: 20130612
  12. MACROGOL [Concomitant]
     Indication: CONSTIPATION
     Route: 065
     Dates: start: 20130612
  13. ENOXAPARIN [Concomitant]
     Indication: THROMBOSIS
     Dosage: 40 MILLIGRAM
     Route: 065
     Dates: start: 20130614, end: 20130703
  14. SODIUM PICOSULFATE [Concomitant]
     Indication: CONSTIPATION
     Route: 065
     Dates: start: 20130614

REACTIONS (1)
  - Hyponatraemia [Recovered/Resolved]
